FAERS Safety Report 22902369 (Version 2)
Quarter: 2024Q3

REPORT INFORMATION
  Report Type: Spontaneous
  Country: US (occurrence: US)
  Receive Date: 20230904
  Receipt Date: 20240704
  Transmission Date: 20241017
  Serious: No
  Sender: ABBVIE
  Company Number: US-ABBVIE-5393349

PATIENT
  Age: 42 Year
  Sex: Female

DRUGS (1)
  1. HUMIRA [Suspect]
     Active Substance: ADALIMUMAB
     Indication: Hidradenitis
     Dosage: FORM STRENGTH: 80 MILLIGRAM
     Route: 058

REACTIONS (4)
  - Wrong technique in product usage process [Not Recovered/Not Resolved]
  - Injection site pain [Unknown]
  - Device defective [Unknown]
  - Injection site discharge [Unknown]

NARRATIVE: CASE EVENT DATE: 20230831
